FAERS Safety Report 14060810 (Version 3)
Quarter: 2018Q2

REPORT INFORMATION
  Report Type: Report from Study
  Country: CA (occurrence: CA)
  Receive Date: 20171009
  Receipt Date: 20180410
  Transmission Date: 20180711
  Serious: Yes (Other)
  Sender: FDA-Public Use
  Company Number: PHHY2013CA049515

PATIENT
  Age: 57 Year
  Sex: Male

DRUGS (6)
  1. NEXIUM [Concomitant]
     Active Substance: ESOMEPRAZOLE MAGNESIUM
     Indication: DYSPEPSIA
     Dosage: UNK
     Route: 065
  2. GLEEVEC [Suspect]
     Active Substance: IMATINIB MESYLATE
     Indication: GASTROINTESTINAL STROMAL TUMOUR
     Dosage: 400 MG, QD
     Route: 048
     Dates: start: 201305, end: 20130717
  3. GLEEVEC [Suspect]
     Active Substance: IMATINIB MESYLATE
     Dosage: 200 MG, QD
     Route: 048
     Dates: start: 201307, end: 201603
  4. GLEEVEC [Suspect]
     Active Substance: IMATINIB MESYLATE
     Dosage: 400 MG, QD
     Route: 048
  5. GLEEVEC [Suspect]
     Active Substance: IMATINIB MESYLATE
     Dosage: 600 MG, QD
     Route: 048
  6. NEXIUM [Concomitant]
     Active Substance: ESOMEPRAZOLE MAGNESIUM
     Indication: NAUSEA

REACTIONS (49)
  - Blood potassium decreased [Unknown]
  - Abdominal pain [Unknown]
  - Swelling face [Unknown]
  - Abdominal distension [Unknown]
  - Recurrent cancer [Unknown]
  - Feeling abnormal [Unknown]
  - Aphasia [Not Recovered/Not Resolved]
  - Somnolence [Unknown]
  - Decreased appetite [Unknown]
  - Neoplasm [Recovered/Resolved]
  - Ear pain [Recovering/Resolving]
  - Poor quality sleep [Unknown]
  - Diarrhoea [Recovering/Resolving]
  - Dyspepsia [Unknown]
  - Confusional state [Unknown]
  - Heart rate decreased [Unknown]
  - Depression [Unknown]
  - Metastasis [Unknown]
  - Anorectal discomfort [Unknown]
  - Fatigue [Unknown]
  - Abdominal discomfort [Not Recovered/Not Resolved]
  - Abdominal pain upper [Not Recovered/Not Resolved]
  - Pain [Not Recovered/Not Resolved]
  - Chills [Not Recovered/Not Resolved]
  - Memory impairment [Not Recovered/Not Resolved]
  - Rash [Unknown]
  - Gastrointestinal stromal tumour [Unknown]
  - Metastases to liver [Unknown]
  - Lung disorder [Unknown]
  - Thyroid hormones decreased [Unknown]
  - Dehydration [Unknown]
  - Blood phosphorus decreased [Unknown]
  - Dysgeusia [Unknown]
  - Pruritus [Unknown]
  - Stubbornness [Unknown]
  - Sensation of foreign body [Unknown]
  - Asthenia [Unknown]
  - Influenza [Not Recovered/Not Resolved]
  - Cough [Not Recovered/Not Resolved]
  - Dysphonia [Not Recovered/Not Resolved]
  - Renal impairment [Recovering/Resolving]
  - Thirst decreased [Unknown]
  - Liver disorder [Unknown]
  - Eating disorder [Unknown]
  - Blood phosphorus abnormal [Unknown]
  - Vomiting [Unknown]
  - Oropharyngeal pain [Recovering/Resolving]
  - Muscle spasms [Not Recovered/Not Resolved]
  - Nausea [Not Recovered/Not Resolved]

NARRATIVE: CASE EVENT DATE: 201305
